FAERS Safety Report 5154312-7 (Version None)
Quarter: 2006Q4

REPORT INFORMATION
  Report Type: 
  Country: None (occurrence: None)
  Receive Date: 20061120
  Receipt Date: 20061105
  Transmission Date: 20070319
  Serious: Yes (Hospitalization)
  Sender: FDA-Public Use
  Company Number: IL-SANOFI-SYNTHELABO-F01200602296

PATIENT
  Sex: Male
  Weight: 85 kg

DRUGS (4)
  1. SIMVASTATIN [Concomitant]
     Route: 048
  2. LEUPROLIDE ACETATE [Suspect]
     Indication: PROSTATE CANCER
     Route: 058
     Dates: start: 20061019, end: 20061019
  3. ENALAPRIL MALEATE [Concomitant]
     Route: 048
  4. DOCETAXEL [Suspect]
     Route: 042
     Dates: start: 20061019, end: 20061019

REACTIONS (1)
  - PYREXIA [None]
